FAERS Safety Report 9190347 (Version 1)
Quarter: 2013Q1

REPORT INFORMATION
  Report Type: Report from Study
  Country: JP (occurrence: JP)
  Receive Date: 20130326
  Receipt Date: 20130326
  Transmission Date: 20140127
  Serious: Yes (Hospitalization, Disabling, Other)
  Sender: FDA-Public Use
  Company Number: JP-ASTELLAS-2012JP011595

PATIENT
  Age: 94 None
  Sex: Male
  Weight: 51.6 kg

DRUGS (13)
  1. MIRABEGRON [Suspect]
     Indication: HYPERTONIC BLADDER
     Dosage: 50 MG, UID/QD
     Route: 048
     Dates: start: 20120823, end: 20120906
  2. STAYBLA [Concomitant]
     Indication: HYPERTONIC BLADDER
     Dosage: 0.1 MG, UID/QD
     Route: 048
     Dates: start: 20120906, end: 20121006
  3. AMLODIPINE BESILATE [Concomitant]
     Indication: HYPERTENSION
     Dosage: 2.5 MG, UNKNOWN/D
     Route: 048
     Dates: end: 20121006
  4. PREMINENT [Concomitant]
     Indication: HYPERTENSION
     Dosage: 1 DF, UID/QD
     Route: 048
     Dates: end: 20121006
  5. SINGULAIR [Concomitant]
     Indication: RHINITIS ALLERGIC
     Dosage: 10 MG, UNKNOWN/D
     Route: 048
     Dates: end: 20121006
  6. MAINTOWA [Concomitant]
     Indication: HYPERTENSION
     Dosage: 2.5 MG, UNKNOWN/D
     Route: 048
     Dates: end: 20121006
  7. NESINA [Concomitant]
     Indication: DIABETES MELLITUS
     Dosage: 25 MG, UNKNOWN/D
     Route: 048
     Dates: end: 20121006
  8. LIVALO [Concomitant]
     Indication: HYPERLIPIDAEMIA
     Dosage: 4 MG, WEEKLY
     Route: 048
     Dates: end: 20121006
  9. MAGNESIUM OXIDE [Concomitant]
     Indication: CONSTIPATION
     Dosage: 2 G, UNKNOWN/D
     Route: 048
     Dates: end: 20121012
  10. FRANDOL [Concomitant]
     Indication: CARDIAC FAILURE CONGESTIVE
     Dosage: 40 MG, UNKNOWN/D
     Route: 048
     Dates: end: 20121006
  11. JZOLOFT [Concomitant]
     Indication: DEPRESSION
     Dosage: 50 MG, UNKNOWN/D
     Route: 048
     Dates: end: 20121006
  12. S.M.                               /00273401/ [Concomitant]
     Indication: GASTRITIS
     Dosage: 3.9 G, UNKNOWN/D
     Route: 048
     Dates: end: 20121006
  13. ALROYER [Concomitant]
     Indication: RHINITIS ALLERGIC
     Dosage: 400 UG, UNKNOWN/D
     Route: 045
     Dates: end: 20121006

REACTIONS (4)
  - Cerebral infarction [Recovered/Resolved with Sequelae]
  - Insomnia [Recovered/Resolved]
  - Dehydration [Recovered/Resolved]
  - Oedema peripheral [Recovered/Resolved]
